FAERS Safety Report 7964612-0 (Version None)
Quarter: 2011Q4

REPORT INFORMATION
  Report Type: 
  Country: None (occurrence: None)
  Receive Date: 20111121
  Receipt Date: 20111017
  Transmission Date: 20120403
  Serious: No
  Sender: FDA-Public Use
  Company Number: 1000024766

PATIENT
  Age: 58 Year
  Sex: Male

DRUGS (1)
  1. VIIBRYD [Suspect]
     Dosage: 10 MG

REACTIONS (1)
  - DIARRHOEA [None]
